FAERS Safety Report 4371831-1 (Version None)
Quarter: 2004Q2

REPORT INFORMATION
  Report Type: 
  Country: None (occurrence: None)
  Receive Date: 20040604
  Receipt Date: 20040604
  Transmission Date: 20050107
  Serious: Yes (Hospitalization)
  Sender: FDA-Public Use
  Company Number: None

PATIENT
  Sex: Male
  Weight: 29 kg

DRUGS (2)
  1. PRIMAXIN [Suspect]
     Indication: APPENDICEAL ABSCESS
     Dosage: 600 MG Q 8H IV
     Route: 042
     Dates: start: 20040512, end: 20040531
  2. PRIMAXIN [Suspect]
     Indication: APPENDICITIS PERFORATED
     Dosage: 600 MG Q 8H IV
     Route: 042
     Dates: start: 20040512, end: 20040531

REACTIONS (3)
  - LETHARGY [None]
  - MALAISE [None]
  - VOMITING [None]
